FAERS Safety Report 23825490 (Version 1)
Quarter: 2024Q2

REPORT INFORMATION
  Report Type: Spontaneous
  Country: US (occurrence: US)
  Receive Date: 20240507
  Receipt Date: 20240507
  Transmission Date: 20240716
  Serious: Yes (Other)
  Sender: FDA-Public Use
  Company Number: US-KOANAAP-SML-US-2024-00382

PATIENT
  Age: 49 Year
  Sex: Male

DRUGS (8)
  1. GEMCITABINE [Suspect]
     Active Substance: GEMCITABINE
     Indication: Malignant sweat gland neoplasm
     Route: 065
  2. PACLITAXEL [Suspect]
     Active Substance: PACLITAXEL
     Indication: Malignant sweat gland neoplasm
     Route: 065
  3. BEVACIZUMAB [Suspect]
     Active Substance: BEVACIZUMAB
     Indication: Malignant sweat gland neoplasm
     Route: 065
  4. CARBOPLATIN [Suspect]
     Active Substance: CARBOPLATIN
     Indication: Malignant sweat gland neoplasm
     Route: 065
  5. SORAFENIB [Suspect]
     Active Substance: SORAFENIB
     Indication: Malignant sweat gland neoplasm
     Route: 065
  6. OXALIPLATIN [Suspect]
     Active Substance: OXALIPLATIN
     Indication: Malignant sweat gland neoplasm
     Route: 065
  7. FLUOROURACIL [Suspect]
     Active Substance: FLUOROURACIL
     Indication: Malignant sweat gland neoplasm
     Route: 065
  8. CYCLOPHOSPHAMIDE [Suspect]
     Active Substance: CYCLOPHOSPHAMIDE
     Indication: Malignant sweat gland neoplasm
     Route: 065

REACTIONS (3)
  - Disease progression [Unknown]
  - Adverse drug reaction [Unknown]
  - Drug ineffective [Unknown]
